FAERS Safety Report 4283678-5 (Version None)
Quarter: 2004Q1

REPORT INFORMATION
  Report Type: 
  Country: None (occurrence: None)
  Receive Date: 20040129
  Receipt Date: 20040129
  Transmission Date: 20041129
  Serious: Yes (Hospitalization)
  Sender: FDA-Public Use
  Company Number: None

PATIENT
  Age: 81 Year
  Sex: Female
  Weight: 55.8 kg

DRUGS (8)
  1. BIAXIN [Suspect]
     Indication: UPPER RESPIRATORY TRACT INFECTION
     Dosage: 500 MG BID
     Dates: start: 20031201, end: 20031205
  2. ASPIRIN [Concomitant]
  3. DIALYVITE [Concomitant]
  4. HUMULIN 70/30 [Concomitant]
  5. QUININE [Concomitant]
  6. RENAGEL [Concomitant]
  7. ZOCOR [Concomitant]
  8. HECTORAL/EPOGEN [Concomitant]

REACTIONS (6)
  - ASTHENIA [None]
  - DELIRIUM [None]
  - DYSPNOEA [None]
  - HAEMODIALYSIS [None]
  - HALLUCINATION [None]
  - MEDICATION ERROR [None]
